FAERS Safety Report 8319260-X (Version None)
Quarter: 2012Q2

REPORT INFORMATION
  Report Type: 
  Country: None (occurrence: None)
  Receive Date: 20120427
  Receipt Date: 20090831
  Transmission Date: 20120825
  Serious: No
  Sender: FDA-Public Use
  Company Number: US-TEVA-2009010058

PATIENT
  Sex: Female
  Weight: 58.566 kg

DRUGS (5)
  1. NUVIGIL [Suspect]
     Indication: FATIGUE
     Route: 048
     Dates: start: 20090801
  2. LITHIUM CARBONATE [Concomitant]
     Dates: start: 19990101
  3. WELLBUTRIN [Concomitant]
     Dates: start: 19990101
  4. ASPIRIN [Concomitant]
  5. NUVIGIL [Suspect]
     Indication: DEPRESSION

REACTIONS (2)
  - FATIGUE [None]
  - DRUG INEFFECTIVE FOR UNAPPROVED INDICATION [None]
